FAERS Safety Report 17074659 (Version 2)
Quarter: 2020Q1

REPORT INFORMATION
  Report Type: Spontaneous
  Country: US (occurrence: US)
  Receive Date: 20191126
  Receipt Date: 20200131
  Transmission Date: 20200409
  Serious: No
  Sender: FDA-Public Use
  Company Number: US-UNITED THERAPEUTICS-UNT-2019-019523

PATIENT
  Sex: Female
  Weight: 58.5 kg

DRUGS (3)
  1. ADEMPAS [Concomitant]
     Active Substance: RIOCIGUAT
     Indication: PRODUCT USED FOR UNKNOWN INDICATION
     Dosage: UNK
     Route: 065
  2. TYVASO [Suspect]
     Active Substance: TREPROSTINIL
     Indication: PULMONARY ARTERIAL HYPERTENSION
     Dosage: 18-54 ?G, QID
     Dates: start: 20190416
  3. ELIQUIS [Concomitant]
     Active Substance: APIXABAN
     Indication: PRODUCT USED FOR UNKNOWN INDICATION
     Dosage: UNK
     Route: 065

REACTIONS (4)
  - Chest discomfort [Unknown]
  - Device malfunction [Unknown]
  - Device issue [Unknown]
  - Dyspnoea [Unknown]

NARRATIVE: CASE EVENT DATE: 2019
